FAERS Safety Report 23754696 (Version 1)
Quarter: 2024Q2

REPORT INFORMATION
  Report Type: Spontaneous
  Country: FR (occurrence: FR)
  Receive Date: 20240418
  Receipt Date: 20240418
  Transmission Date: 20240715
  Serious: Yes (Other)
  Sender: FDA-Public Use
  Company Number: FR-AFSSAPS-LL2024000573

PATIENT
  Age: 30 Year
  Sex: Male
  Weight: 42 kg

DRUGS (7)
  1. MELATONIN [Suspect]
     Active Substance: MELATONIN
     Indication: Psychotic disorder
     Dosage: 2 DOSAGE FORM
     Route: 048
  2. PROPRANOLOL [Suspect]
     Active Substance: PROPRANOLOL HYDROCHLORIDE
     Indication: Psychotic disorder
     Dosage: 40 MILLIGRAM
     Route: 048
  3. ZOPICLONE [Suspect]
     Active Substance: ZOPICLONE
     Indication: Psychotic disorder
     Dosage: 1 DOSAGE FORM
     Route: 048
  4. ZUCLOPENTHIXOL [Suspect]
     Active Substance: ZUCLOPENTHIXOL
     Indication: Psychotic disorder
     Dosage: 40 DOSAGE FORM
     Route: 048
  5. TROPATEPINE HYDROCHLORIDE [Suspect]
     Active Substance: TROPATEPINE HYDROCHLORIDE
     Indication: Psychotic disorder
     Dosage: 1 DOSAGE FORM
     Route: 048
  6. LORAZEPAM [Suspect]
     Active Substance: LORAZEPAM
     Indication: Psychotic disorder
     Dosage: 1 DOSAGE FORM
     Route: 048
  7. MIRTAZAPINE [Suspect]
     Active Substance: MIRTAZAPINE
     Indication: Psychotic disorder
     Dosage: 2 DOSAGE FORM
     Route: 048

REACTIONS (2)
  - Supraventricular tachycardia [Recovered/Resolved]
  - Hypotension [Recovered/Resolved]

NARRATIVE: CASE EVENT DATE: 20240214
